FAERS Safety Report 10267328 (Version 2)
Quarter: 2014Q3

REPORT INFORMATION
  Report Type: Spontaneous
  Country: JP (occurrence: JP)
  Receive Date: 20140630
  Receipt Date: 20140730
  Transmission Date: 20150326
  Serious: Yes (Other)
  Sender: FDA-Public Use
  Company Number: PHHY2014JP079799

PATIENT
  Age: 81 Year
  Sex: Female

DRUGS (3)
  1. DENOSUMAB [Suspect]
     Active Substance: DENOSUMAB
     Route: 058
     Dates: start: 201212, end: 201306
  2. ZOMETA [Suspect]
     Active Substance: ZOLEDRONIC ACID
     Indication: METASTASES TO BONE
  3. ZOMETA [Suspect]
     Active Substance: ZOLEDRONIC ACID
     Indication: THYROID CANCER
     Route: 041
     Dates: start: 200906, end: 201211

REACTIONS (1)
  - Osteonecrosis of jaw [Unknown]
